FAERS Safety Report 20104321 (Version 1)
Quarter: 2021Q4

REPORT INFORMATION
  Report Type: Spontaneous
  Country: US (occurrence: US)
  Receive Date: 20211123
  Receipt Date: 20211123
  Transmission Date: 20220303
  Serious: No
  Sender: FDA-Public Use
  Company Number: US-AMNEAL PHARMACEUTICALS-2021-AMRX-02001

PATIENT
  Sex: Female
  Weight: 45.351 kg

DRUGS (9)
  1. ISOTRETINOIN [Suspect]
     Active Substance: ISOTRETINOIN
     Indication: Acne
     Dosage: 40MG  1 CAPSULES, DAILY
     Route: 048
     Dates: start: 202102
  2. ISOTRETINOIN [Suspect]
     Active Substance: ISOTRETINOIN
     Dosage: 20 MILLIGRAM, DAILY
     Route: 048
     Dates: start: 20210310, end: 2021
  3. ISOTRETINOIN [Suspect]
     Active Substance: ISOTRETINOIN
     Dosage: 30MG 1 CAPSULES, DAILY
     Route: 048
  4. ISOTRETINOIN [Suspect]
     Active Substance: ISOTRETINOIN
     Dosage: DOSE DECREASED
     Route: 065
  5. RETIN-A [Concomitant]
     Active Substance: TRETINOIN
     Indication: Acne
     Dosage: MONDAY, WED AND FRIDAY THEN APPLIED NIGHT EVERY 2 WEEKS
     Route: 061
  6. ACZONE [Concomitant]
     Active Substance: DAPSONE
     Indication: Acne
     Dosage: UNK
     Route: 061
  7. DIFFERIN [Concomitant]
     Active Substance: ADAPALENE
     Indication: Acne
     Dosage: UNK
     Route: 061
  8. MINOCYCLINE [Concomitant]
     Active Substance: MINOCYCLINE HYDROCHLORIDE
     Indication: Acne
     Dosage: 1 CAPSULES, 2 /DAY
     Route: 048
  9. BENZOYL PEROXIDE\CLINDAMYCIN [Concomitant]
     Active Substance: BENZOYL PEROXIDE\CLINDAMYCIN
     Indication: Acne
     Dosage: UNK UNK, 1X/DAY (APPLIED ON AFFECTED AREAS ON FACE ONCE DAILY)
     Route: 061

REACTIONS (3)
  - Dermatitis [Unknown]
  - Back pain [Not Recovered/Not Resolved]
  - Myalgia [Recovered/Resolved]
